FAERS Safety Report 8597537-0 (Version None)
Quarter: 2012Q3

REPORT INFORMATION
  Report Type: 
  Country: None (occurrence: None)
  Receive Date: 20120802
  Receipt Date: 20120723
  Transmission Date: 20120928
  Serious: Yes (Death, Other)
  Sender: FDA-Public Use
  Company Number: 2012P1051317

PATIENT

DRUGS (9)
  1. CARISOPRODOL (NO PREF. NAME) [Suspect]
  2. MEPROBAMATE [Suspect]
  3. TEMAZEPAM [Concomitant]
  4. NORTRIPTYLINE HCL [Suspect]
  5. ALCOHOL (NO PREF. NAME) [Suspect]
  6. DIAZEPAM [Suspect]
  7. AMITRIPTYLINE HCL [Suspect]
  8. NORDIAZEPAM (NO PREF. NAME) [Suspect]
  9. CANNABINOIDS (NO PREF. NAME) [Suspect]

REACTIONS (2)
  - TOXICITY TO VARIOUS AGENTS [None]
  - ACCIDENTAL DEATH [None]
